FAERS Safety Report 7234360-3 (Version None)
Quarter: 2011Q1

REPORT INFORMATION
  Report Type: 
  Country: None (occurrence: None)
  Receive Date: 20110119
  Receipt Date: 20101130
  Transmission Date: 20110831
  Serious: Yes (Hospitalization)
  Sender: FDA-Public Use
  Company Number: US-BAYER-201030559NA

PATIENT
  Sex: Female
  Weight: 83 kg

DRUGS (10)
  1. ZOLOFT [Concomitant]
     Dosage: DAILY DOSE 100 MG
     Route: 048
  2. YASMIN [Suspect]
     Indication: PRODUCT USED FOR UNKNOWN INDICATION
     Dosage: UNK UNK, UNK
     Route: 048
  3. BACTRIM DS [Concomitant]
     Dosage: UNK UNK, BID
  4. YAZ [Suspect]
     Indication: PREMENSTRUAL SYNDROME
     Dosage: DAILY DOSE 1 DF
     Route: 048
     Dates: start: 20070424, end: 20081113
  5. PREVACID [Concomitant]
     Dosage: DAILY DOSE 30 MG
     Route: 048
  6. ALLEGRA [Concomitant]
     Dosage: DAILY DOSE 180 MG
     Route: 048
  7. ANAPROX [Concomitant]
  8. MUCO-FEN DM [Concomitant]
     Dosage: UNK UNK, BID
  9. AMITRIPTYLINE HCL [Concomitant]
     Dosage: 50 MG, UNK
  10. ASTELIN [Concomitant]
     Route: 045

REACTIONS (6)
  - ABDOMINAL PAIN UPPER [None]
  - VOMITING [None]
  - CHOLECYSTITIS CHRONIC [None]
  - NAUSEA [None]
  - CHOLELITHIASIS [None]
  - CHOLECYSTITIS ACUTE [None]
